FAERS Safety Report 20320364 (Version 1)
Quarter: 2022Q1

REPORT INFORMATION
  Report Type: Spontaneous
  Country: IN (occurrence: None)
  Receive Date: 20220111
  Receipt Date: 20220111
  Transmission Date: 20220424
  Serious: Yes (Hospitalization)
  Sender: FDA-Public Use
  Company Number: IN-MLMSERVICE-20211224-3286618-1

PATIENT
  Age: 13 Year
  Sex: Female

DRUGS (3)
  1. CIPROFLOXACIN [Interacting]
     Active Substance: CIPROFLOXACIN
     Indication: Renal abscess
     Route: 065
  2. CYCLOSPORINE [Interacting]
     Active Substance: CYCLOSPORINE
     Dosage: ON WEANING DOSES
     Route: 065
  3. LINEZOLID [Concomitant]
     Active Substance: LINEZOLID
     Indication: Renal abscess
     Route: 065

REACTIONS (3)
  - Drug interaction [Recovered/Resolved]
  - Toxic leukoencephalopathy [Recovered/Resolved]
  - Acute kidney injury [Unknown]
